FAERS Safety Report 13684974 (Version 1)
Quarter: 2017Q2

REPORT INFORMATION
  Report Type: Spontaneous
  Country: US (occurrence: US)
  Receive Date: 20170623
  Receipt Date: 20170623
  Transmission Date: 20170830
  Serious: No
  Sender: FDA-Public Use
  Company Number: US-INTERPRAG-PM-OCA2017-00303

PATIENT

DRUGS (6)
  1. MECLIZINE [Concomitant]
     Active Substance: MECLIZINE HYDROCHLORIDE
  2. NALTREXONE [Concomitant]
     Active Substance: NALTREXONE
  3. URSODIOL. [Concomitant]
     Active Substance: URSODIOL
     Dosage: UNK
  4. DOXYCYCLINE. [Concomitant]
     Active Substance: DOXYCYCLINE
  5. OCALIVA [Suspect]
     Active Substance: OBETICHOLIC ACID
     Indication: RESPIRATORY TRACT MALFORMATION
     Dosage: 5 MG, QD
     Route: 048
     Dates: start: 20160827
  6. LISINOPRIL. [Concomitant]
     Active Substance: LISINOPRIL

REACTIONS (3)
  - Pruritus [Unknown]
  - Dizziness [Unknown]
  - Product use issue [Unknown]
